FAERS Safety Report 17952375 (Version 2)
Quarter: 2020Q3

REPORT INFORMATION
  Report Type: Spontaneous
  Country: US (occurrence: US)
  Receive Date: 20200626
  Receipt Date: 20200701
  Transmission Date: 20201103
  Serious: No
  Sender: FDA-Public Use
  Company Number: US-BIOGEN-2020BI00889704

PATIENT
  Sex: Female

DRUGS (3)
  1. TYSABRI [Suspect]
     Active Substance: NATALIZUMAB
     Route: 065
     Dates: start: 20120118, end: 20120210
  2. ZINBRYTA [Suspect]
     Active Substance: DACLIZUMAB
     Indication: MULTIPLE SCLEROSIS
     Route: 065
     Dates: start: 20170615
  3. TYSABRI [Suspect]
     Active Substance: NATALIZUMAB
     Indication: MULTIPLE SCLEROSIS
     Route: 065
     Dates: end: 2019

REACTIONS (9)
  - Pain [Unknown]
  - Eyelid irritation [Recovered/Resolved]
  - Flushing [Recovered/Resolved]
  - Mobility decreased [Not Recovered/Not Resolved]
  - Muscle spasms [Unknown]
  - Blood pressure increased [Recovered/Resolved]
  - Multiple sclerosis [Not Recovered/Not Resolved]
  - Muscle rigidity [Unknown]
  - Multiple sclerosis relapse [Unknown]

NARRATIVE: CASE EVENT DATE: 2019
